FAERS Safety Report 24465528 (Version 1)
Quarter: 2024Q4

REPORT INFORMATION
  Report Type: Report from Study
  Country: US (occurrence: US)
  Receive Date: 20241018
  Receipt Date: 20241018
  Transmission Date: 20250114
  Serious: No
  Sender: ROCHE
  Company Number: US-ROCHE-3531738

PATIENT
  Age: 86 Year
  Sex: Male

DRUGS (27)
  1. XOLAIR [Suspect]
     Active Substance: OMALIZUMAB
     Indication: Asthma
     Dosage: STRENGTH: 150MG/75 MG
     Route: 058
     Dates: start: 20220818, end: 20220818
  2. XOLAIR [Suspect]
     Active Substance: OMALIZUMAB
     Indication: Asthma
  3. XOLAIR [Suspect]
     Active Substance: OMALIZUMAB
     Indication: Asthma
     Route: 058
     Dates: start: 20191119
  4. XOLAIR [Suspect]
     Active Substance: OMALIZUMAB
     Indication: Asthma
  5. ALBUTEROL SULFATE [Concomitant]
     Active Substance: ALBUTEROL SULFATE
     Indication: Dyspnoea
     Dosage: 2 PUFFS BY INHALATION
     Dates: start: 20220203, end: 20230129
  6. AMLODIPINE [Concomitant]
     Active Substance: AMLODIPINE BESYLATE
     Route: 048
  7. VITAMIN D3 [Concomitant]
     Active Substance: CHOLECALCIFEROL
     Dosage: 1000 UNIT
     Route: 048
     Dates: start: 20191119
  8. CLOPIDOGREL [Concomitant]
     Active Substance: CLOPIDOGREL BISULFATE
  9. DEXTROMETHORPHAN\GUAIFENESIN [Concomitant]
     Active Substance: DEXTROMETHORPHAN\GUAIFENESIN
     Route: 048
  10. DONEPEZIL [Concomitant]
     Active Substance: DONEPEZIL
  11. EPINEPHRINE [Concomitant]
     Active Substance: EPINEPHRINE
     Route: 030
  12. FERROUS GLUCONATE [Concomitant]
     Active Substance: FERROUS GLUCONATE
  13. FERROUS SULFATE [Concomitant]
     Active Substance: FERROUS SULFATE
  14. FLUTICASONE PROPIONATE [Concomitant]
     Active Substance: FLUTICASONE PROPIONATE
  15. GLUCOSAMINE SULFATE [Concomitant]
     Active Substance: GLUCOSAMINE SULFATE
     Route: 048
  16. NORCO [Concomitant]
     Active Substance: ACETAMINOPHEN\HYDROCODONE BITARTRATE
     Route: 048
  17. IBUPROFEN [Concomitant]
     Active Substance: IBUPROFEN
     Route: 048
  18. LEVETIRACETAM [Concomitant]
     Active Substance: LEVETIRACETAM
  19. LOSARTAN [Concomitant]
     Active Substance: LOSARTAN
  20. MAGNESIUM OXIDE [Concomitant]
     Active Substance: MAGNESIUM OXIDE
     Route: 048
  21. METFORMIN [Concomitant]
     Active Substance: METFORMIN HYDROCHLORIDE
  22. METHOCARBAMOL [Concomitant]
     Active Substance: METHOCARBAMOL
     Dates: start: 20211230
  23. METOPROLOL TARTRATE [Concomitant]
     Active Substance: METOPROLOL TARTRATE
  24. PANTOPRAZOLE [Concomitant]
     Active Substance: PANTOPRAZOLE
  25. PRAVASTATIN [Concomitant]
     Active Substance: PRAVASTATIN
  26. SIMVASTATIN [Concomitant]
     Active Substance: SIMVASTATIN
     Dates: start: 20180125
  27. SYMBICORT [Concomitant]
     Active Substance: BUDESONIDE\FORMOTEROL FUMARATE DIHYDRATE
     Dosage: 2 PUFFS INHALATION
     Route: 048

REACTIONS (2)
  - Off label use [Unknown]
  - No adverse event [Unknown]
